FAERS Safety Report 23877549 (Version 2)
Quarter: 2024Q2

REPORT INFORMATION
  Report Type: Report from Study
  Country: US (occurrence: US)
  Receive Date: 20240521
  Receipt Date: 20240528
  Transmission Date: 20240715
  Serious: Yes (Other)
  Sender: FDA-Public Use
  Company Number: US-ABBVIE-5767382

PATIENT
  Age: 61 Year
  Sex: Male

DRUGS (2)
  1. DUOPA [Suspect]
     Active Substance: CARBIDOPA\LEVODOPA
     Indication: Parkinson^s disease
     Dosage: PUMP SERIAL NUMBER 581545, PEG-J PLACED 1/4/22
     Route: 050
     Dates: start: 20220112
  2. DUOPA [Suspect]
     Active Substance: CARBIDOPA\LEVODOPA

REACTIONS (6)
  - Thyroid cancer [Unknown]
  - Device loosening [Unknown]
  - Dysstasia [Not Recovered/Not Resolved]
  - Weight decreased [Unknown]
  - Speech disorder [Not Recovered/Not Resolved]
  - Thinking abnormal [Unknown]

NARRATIVE: CASE EVENT DATE: 20240522
